FAERS Safety Report 6061470-9 (Version None)
Quarter: 2009Q1

REPORT INFORMATION
  Report Type: 
  Country: None (occurrence: None)
  Receive Date: 20090202
  Receipt Date: 20090123
  Transmission Date: 20090719
  Serious: Yes (Hospitalization)
  Sender: FDA-Public Use
  Company Number: US-JNJFOC-20080903872

PATIENT
  Sex: Female
  Weight: 139.26 kg

DRUGS (9)
  1. NIZORAL [Suspect]
  2. NIZORAL [Suspect]
     Indication: DANDRUFF
  3. VERAPAMIL EXTENDED-RELEASE [Concomitant]
  4. DIOVAN [Concomitant]
  5. FLOVENT [Concomitant]
  6. FLONASE [Concomitant]
  7. ALLEGRA D 24 HOUR [Concomitant]
  8. TORSEMIDE [Concomitant]
  9. LISINOPRIL [Concomitant]

REACTIONS (1)
  - DERMATITIS BULLOUS [None]
